FAERS Safety Report 10023195 (Version 1)
Quarter: 2014Q1

REPORT INFORMATION
  Report Type: Spontaneous
  Country: US (occurrence: US)
  Receive Date: 20140320
  Receipt Date: 20140320
  Transmission Date: 20141002
  Serious: Yes (Hospitalization)
  Sender: FDA-Public Use
  Company Number: US-BIOGENIDEC-2014BI024830

PATIENT
  Age: 48 Year
  Sex: Female

DRUGS (2)
  1. AVONEX [Suspect]
     Indication: MULTIPLE SCLEROSIS
     Route: 030
     Dates: start: 20050930
  2. AVONEX [Suspect]
     Indication: MULTIPLE SCLEROSIS
     Route: 030
     Dates: start: 20071001

REACTIONS (4)
  - Hypoaesthesia [Recovered/Resolved]
  - Gait disturbance [Recovered/Resolved]
  - Blood pressure increased [Recovered/Resolved]
  - Speech disorder [Recovered/Resolved]
